FAERS Safety Report 15977863 (Version 1)
Quarter: 2019Q1

REPORT INFORMATION
  Report Type: Spontaneous
  Country: US (occurrence: US)
  Receive Date: 20190218
  Receipt Date: 20190218
  Transmission Date: 20190418
  Serious: No
  Sender: FDA-Public Use
  Company Number: US-009507513-1902USA006716

PATIENT
  Age: 46 Year
  Sex: Female
  Weight: 82.55 kg

DRUGS (1)
  1. NEXPLANON [Suspect]
     Active Substance: ETONOGESTREL
     Dosage: 1 IMPLANT IN THE LEFT ARM
     Route: 059
     Dates: start: 2016

REACTIONS (2)
  - Complication associated with device [Unknown]
  - Embedded device [Unknown]

NARRATIVE: CASE EVENT DATE: 20190205
